FAERS Safety Report 16947869 (Version 1)
Quarter: 2019Q4

REPORT INFORMATION
  Report Type: Spontaneous
  Country: US (occurrence: US)
  Receive Date: 20191022
  Receipt Date: 20191022
  Transmission Date: 20200122
  Serious: No
  Sender: FDA-Public Use
  Company Number: US-ROCHE-2237266

PATIENT
  Age: 52 Year
  Sex: Female

DRUGS (3)
  1. VEMURAFENIB. [Suspect]
     Active Substance: VEMURAFENIB
     Indication: ERDHEIM-CHESTER DISEASE
     Route: 048
  2. VEMURAFENIB. [Suspect]
     Active Substance: VEMURAFENIB
     Route: 048
  3. BEVACIZUMAB. [Concomitant]
     Active Substance: BEVACIZUMAB
     Route: 050

REACTIONS (2)
  - Rash [Unknown]
  - Diarrhoea [Unknown]
